FAERS Safety Report 5465850-1 (Version None)
Quarter: 2007Q3

REPORT INFORMATION
  Report Type: 
  Country: None (occurrence: None)
  Receive Date: 20070924
  Receipt Date: 20070917
  Transmission Date: 20080115
  Serious: Yes (Disabling)
  Sender: FDA-Public Use
  Company Number: PHEH2007US12522

PATIENT
  Age: 70 Year
  Sex: Male
  Weight: 81.632 kg

DRUGS (9)
  1. PAXIL [Concomitant]
     Dosage: 25 MG, QD
  2. AMLODIPINE BESYLATE [Concomitant]
     Dosage: 10 MG, QD
  3. BENICAR HCT [Concomitant]
     Dosage: 40/25MG QD
  4. PRILOSEC [Suspect]
     Dosage: 20 MG, QD
     Route: 048
  5. COUMADIN [Concomitant]
     Dosage: UNK, QHS
  6. SOTALOL HYDROCHLORIDE [Concomitant]
     Dosage: 80 MG, BID
     Route: 048
  7. M.V.I. [Concomitant]
     Dosage: 1DF/DAY
  8. TEKTURNA [Suspect]
     Indication: HYPERTENSION
     Dosage: 150 MG, QD
     Route: 048
     Dates: start: 20070725, end: 20070813
  9. LIPITOR [Suspect]
     Dosage: 80 MG QD

REACTIONS (9)
  - ABDOMINAL DISCOMFORT [None]
  - ASTHENIA [None]
  - BILIRUBIN CONJUGATED INCREASED [None]
  - BLOOD BILIRUBIN INCREASED [None]
  - BLOOD CREATININE INCREASED [None]
  - HEPATITIS A [None]
  - JAUNDICE [None]
  - LIVER FUNCTION TEST ABNORMAL [None]
  - PYREXIA [None]
